FAERS Safety Report 5065616-0 (Version None)
Quarter: 2006Q3

REPORT INFORMATION
  Report Type: 
  Country: None (occurrence: None)
  Receive Date: 20060714
  Receipt Date: 20060515
  Transmission Date: 20061208
  Serious: No
  Sender: FDA-Public Use
  Company Number: 2006SP002067

PATIENT
  Sex: Male
  Weight: 86.1834 kg

DRUGS (7)
  1. LUNESTA [Suspect]
     Indication: INSOMNIA
     Dosage: SEE IMAGE
     Route: 048
     Dates: start: 20060101, end: 20060101
  2. LUNESTA [Suspect]
     Indication: INSOMNIA
     Dosage: SEE IMAGE
     Route: 048
     Dates: start: 20060201, end: 20060101
  3. TRAZODONE HCL [Concomitant]
  4. TRICOR [Concomitant]
  5. FENTANYL [Concomitant]
  6. OMEPRAZOLE [Concomitant]
  7. ZOLOFT [Concomitant]

REACTIONS (1)
  - MIDDLE INSOMNIA [None]
